FAERS Safety Report 4487667-7 (Version None)
Quarter: 2004Q4

REPORT INFORMATION
  Report Type: 
  Country: None (occurrence: None)
  Receive Date: 20041027
  Receipt Date: 20041027
  Transmission Date: 20050328
  Serious: Yes (Hospitalization)
  Sender: FDA-Public Use
  Company Number: None

PATIENT
  Age: 73 Year
  Sex: Female

DRUGS (8)
  1. TOPROL-XL [Suspect]
     Indication: ATRIAL FIBRILLATION
     Route: 065
  2. TOPROL-XL [Suspect]
     Indication: CARDIAC FAILURE
     Route: 065
  3. TOPROL-XL [Suspect]
     Indication: HYPERTENSION
     Route: 065
  4. CORDARONE [Suspect]
  5. BENICAR [Suspect]
  6. COREG [Suspect]
  7. NORVASC [Suspect]
  8. LANOXIN [Suspect]

REACTIONS (5)
  - ASTHENIA [None]
  - ATRIOVENTRICULAR BLOCK FIRST DEGREE [None]
  - NAUSEA [None]
  - SINUS BRADYCARDIA [None]
  - VOMITING [None]
